FAERS Safety Report 22771928 (Version 3)
Quarter: 2024Q3

REPORT INFORMATION
  Report Type: Spontaneous
  Country: JP (occurrence: JP)
  Receive Date: 20230801
  Receipt Date: 20240927
  Transmission Date: 20241017
  Serious: No
  Sender: PFIZER
  Company Number: JP-PFIZER INC-PV202300127682

PATIENT
  Age: 9 Year
  Sex: Female

DRUGS (1)
  1. NGENLA [Suspect]
     Active Substance: SOMATROGON-GHLA
     Dosage: 12 MG, WEEKLY
     Route: 058

REACTIONS (1)
  - Injection site pain [Unknown]
